FAERS Safety Report 12601805 (Version 1)
Quarter: 2016Q3

REPORT INFORMATION
  Report Type: Spontaneous
  Country: US (occurrence: None)
  Receive Date: 20160727
  Receipt Date: 20160727
  Transmission Date: 20161109
  Serious: Yes (Life-Threatening, Disabling)
  Sender: FDA-Public Use
  Company Number: None

PATIENT
  Age: 37 Year
  Sex: Female
  Weight: 45.36 kg

DRUGS (3)
  1. LAMATRIGINE [Suspect]
     Active Substance: LAMOTRIGINE
     Indication: PANIC ATTACK
     Dosage: 1 PILL DALY ONCE DAILY MOUTH
     Route: 048
  2. LAMATRIGINE [Suspect]
     Active Substance: LAMOTRIGINE
     Indication: SMOKING CESSATION THERAPY
     Dosage: 1 PILL DALY ONCE DAILY MOUTH
     Route: 048
  3. ZOLOFT [Suspect]
     Active Substance: SERTRALINE HYDROCHLORIDE

REACTIONS (9)
  - Hypoaesthesia [None]
  - Dizziness [None]
  - Vision blurred [None]
  - Rhinorrhoea [None]
  - Pain [None]
  - Rash generalised [None]
  - Musculoskeletal stiffness [None]
  - Nausea [None]
  - Panic attack [None]

NARRATIVE: CASE EVENT DATE: 20160325
